FAERS Safety Report 15463771 (Version 2)
Quarter: 2018Q4

REPORT INFORMATION
  Report Type: Spontaneous
  Country: SK (occurrence: SK)
  Receive Date: 20181004
  Receipt Date: 20181023
  Transmission Date: 20190204
  Serious: Yes (Congenital Anomaly, Other)
  Sender: FDA-Public Use
  Company Number: SK-PFIZER INC-2018396564

PATIENT
  Age: 53 Year
  Sex: Female

DRUGS (9)
  1. CYCLOSPORINE. [Suspect]
     Active Substance: CYCLOSPORINE
     Dosage: 100-0-125 MG DAILY (3X/DAY)
     Route: 065
  2. ADALIMUMAB [Suspect]
     Active Substance: ADALIMUMAB
     Dosage: 40 MG ONCE PER WEEK SINCE 29TH DAY
     Route: 058
  3. NEOTIGASON [Suspect]
     Active Substance: ACITRETIN
     Dosage: 25 MG, UNK
     Route: 065
  4. DAPSONE. [Suspect]
     Active Substance: DAPSONE
     Dosage: 150 MG, PER 6 DAYS IN A WEEK
     Route: 065
  5. ADALIMUMAB [Suspect]
     Active Substance: ADALIMUMAB
     Dosage: 160 MG, UNK (FIRST DOSE)
     Route: 058
  6. ADALIMUMAB [Suspect]
     Active Substance: ADALIMUMAB
     Dosage: 80 MG, UNK (SECOND WEEK)
     Route: 058
  7. MEDROL [Suspect]
     Active Substance: METHYLPREDNISOLONE
     Dosage: 8 MG, 1X/DAY
     Route: 065
  8. CLINDAMYCIN. [Suspect]
     Active Substance: CLINDAMYCIN
     Dosage: UNK
     Route: 051
  9. NEOTIGASON [Suspect]
     Active Substance: ACITRETIN
     Dosage: 10 MG, UNK
     Route: 065

REACTIONS (8)
  - Dyspepsia [Unknown]
  - Type IIb hyperlipidaemia [Unknown]
  - Anaemia [Unknown]
  - Pancreatic disorder [Unknown]
  - Lymphadenopathy [Unknown]
  - Renal cyst [Unknown]
  - Mastitis [Unknown]
  - Off label use [Unknown]
